FAERS Safety Report 7284458-9 (Version None)
Quarter: 2011Q1

REPORT INFORMATION
  Report Type: 
  Country: None (occurrence: None)
  Receive Date: 20110209
  Receipt Date: 20110207
  Transmission Date: 20110831
  Serious: Yes (Other)
  Sender: FDA-Public Use
  Company Number: CA-PFIZER INC-2010018558

PATIENT
  Age: 42 Year
  Sex: Female
  Weight: 54.422 kg

DRUGS (3)
  1. SYNTHROID [Concomitant]
     Indication: THYROID DISORDER
     Dosage: 0.075 MG, 1X/DAY
  2. CHAMPIX [Suspect]
     Indication: SMOKING CESSATION THERAPY
     Dosage: UNK
  3. SEROQUEL [Concomitant]
     Dosage: 100 MG, DAILY AT BEDTIME

REACTIONS (10)
  - THINKING ABNORMAL [None]
  - IRRITABILITY [None]
  - AGGRESSION [None]
  - NAUSEA [None]
  - IMPULSIVE BEHAVIOUR [None]
  - DECREASED APPETITE [None]
  - NIGHTMARE [None]
  - ABNORMAL BEHAVIOUR [None]
  - TREMOR [None]
  - INSOMNIA [None]
